FAERS Safety Report 5211972-X (Version None)
Quarter: 2007Q1

REPORT INFORMATION
  Report Type: 
  Country: None (occurrence: None)
  Receive Date: 20070118
  Receipt Date: 20070116
  Transmission Date: 20070707
  Serious: Yes (Life-Threatening, Hospitalization)
  Sender: FDA-Public Use
  Company Number: JP-JPN-A20053084

PATIENT
  Age: 31 Year
  Sex: Male
  Weight: 66 kg

DRUGS (4)
  1. FLUTIDE [Suspect]
     Indication: ASTHMA
     Dosage: 200MCG TWICE PER DAY
     Route: 055
     Dates: start: 20030208, end: 20030323
  2. CLARITHROMYCIN [Concomitant]
     Dosage: 150MG PER DAY
     Route: 048
     Dates: start: 20030208, end: 20030323
  3. MUCODYNE [Concomitant]
     Indication: ASTHMA
     Dosage: 1500MG PER DAY
     Route: 048
     Dates: start: 20030208, end: 20030323
  4. THEO-DUR [Concomitant]
     Indication: ASTHMA
     Dosage: 400MG PER DAY
     Route: 048
     Dates: start: 20030208, end: 20030323

REACTIONS (19)
  - ASCITES [None]
  - BLOOD IMMUNOGLOBULIN E INCREASED [None]
  - DISSEMINATED INTRAVASCULAR COAGULATION [None]
  - HEPATIC ATROPHY [None]
  - HEPATIC FUNCTION ABNORMAL [None]
  - HEPATITIS [None]
  - HERPES SIMPLEX [None]
  - LEUKOCYTOSIS [None]
  - MALAISE [None]
  - MYOCARDITIS [None]
  - OESOPHAGITIS [None]
  - ORAL INTAKE REDUCED [None]
  - PHARYNGEAL ULCERATION [None]
  - PHARYNGOLARYNGEAL PAIN [None]
  - RENAL DISORDER [None]
  - RENAL IMPAIRMENT [None]
  - RESPIRATORY RATE INCREASED [None]
  - THROMBOCYTOPENIA [None]
  - VENTRICULAR TACHYCARDIA [None]
